FAERS Safety Report 13560845 (Version 1)
Quarter: 2017Q2

REPORT INFORMATION
  Report Type: Spontaneous
  Country: US (occurrence: US)
  Receive Date: 20170518
  Receipt Date: 20170518
  Transmission Date: 20170830
  Serious: No
  Sender: FDA-Public Use
  Company Number: US-ROCHE-1250741

PATIENT
  Age: 62 Year
  Sex: Female
  Weight: 73.55 kg

DRUGS (9)
  1. TRAMADOL. [Concomitant]
     Active Substance: TRAMADOL
  2. BIOTENE TOOTHPASTE [Concomitant]
  3. SUTENT [Concomitant]
     Active Substance: SUNITINIB MALATE
     Route: 065
  4. DEXAMETHASONE. [Concomitant]
     Active Substance: DEXAMETHASONE
  5. BIOTENE MOUTHWASH [Concomitant]
     Active Substance: CETYLPYRIDINIUM CHLORIDE
  6. NYSTATIN. [Concomitant]
     Active Substance: NYSTATIN
  7. TYLENOL [Concomitant]
     Active Substance: ACETAMINOPHEN
  8. NAPROSYN [Suspect]
     Active Substance: NAPROXEN
     Indication: PRODUCT USED FOR UNKNOWN INDICATION
     Route: 065
  9. ZOMETA [Concomitant]
     Active Substance: ZOLEDRONIC ACID

REACTIONS (5)
  - Hypersensitivity [Unknown]
  - Leukopenia [Recovering/Resolving]
  - Oral pain [Recovered/Resolved]
  - Thrombocytopenia [Recovering/Resolving]
  - Candida infection [Recovered/Resolved]

NARRATIVE: CASE EVENT DATE: 20130624
